FAERS Safety Report 5113813-8 (Version None)
Quarter: 2006Q3

REPORT INFORMATION
  Report Type: 
  Country: None (occurrence: None)
  Receive Date: 20060921
  Receipt Date: 20060921
  Transmission Date: 20061208
  Serious: No
  Sender: FDA-Public Use
  Company Number: None

PATIENT
  Age: 12 Year
  Sex: Female

DRUGS (2)
  1. PREDNISOLONE ACETATE [Suspect]
     Indication: UVEITIS
     Dosage: ONE GTT BID OV
     Route: 047
     Dates: start: 20060630
  2. PREDNISOLONE ACETATE [Suspect]
     Indication: UVEITIS
     Dosage: ONE GTT BID OV
     Route: 047
     Dates: start: 20060908

REACTIONS (2)
  - THERAPEUTIC RESPONSE UNEXPECTED WITH DRUG SUBSTITUTION [None]
  - UVEITIS [None]
